FAERS Safety Report 9170709 (Version 1)
Quarter: 2013Q1

REPORT INFORMATION
  Report Type: Spontaneous
  Country: US (occurrence: None)
  Receive Date: 20130312
  Receipt Date: 20130312
  Transmission Date: 20140127
  Serious: Yes (Hospitalization, Other)
  Sender: FDA-Public Use
  Company Number: ADR-2013-00389

PATIENT
  Sex: Female

DRUGS (1)
  1. BACLOFEN [Suspect]

REACTIONS (3)
  - Gastrointestinal disorder [None]
  - Asthenia [None]
  - Hypotonia [None]
